FAERS Safety Report 7161820-6 (Version None)
Quarter: 2010Q4

REPORT INFORMATION
  Report Type: 
  Country: None (occurrence: None)
  Receive Date: 20101201
  Receipt Date: 20101117
  Transmission Date: 20110411
  Serious: Yes (Life-Threatening)
  Sender: FDA-Public Use
  Company Number: 022133

PATIENT
  Sex: Female
  Weight: 70 kg

DRUGS (3)
  1. KEPPRA [Suspect]
     Indication: EPILEPSY
     Dosage: 500 MG BID ORAL
     Route: 048
     Dates: start: 20101101
  2. PHENYTOIN [Suspect]
     Indication: EPILEPSY
     Dosage: 300 MG ORAL
     Route: 048
     Dates: start: 20080101, end: 20101101
  3. LAMIVUDINE [Suspect]
     Indication: HEPATITIS C
     Dosage: 100 MG QD ORAL
     Route: 048
     Dates: end: 20101101

REACTIONS (4)
  - CHEMICAL INJURY [None]
  - DRUG TOXICITY [None]
  - EPIDERMOLYSIS [None]
  - LACTIC ACIDOSIS [None]
